FAERS Safety Report 7285322-1 (Version None)
Quarter: 2011Q1

REPORT INFORMATION
  Report Type: 
  Country: None (occurrence: None)
  Receive Date: 20110210
  Receipt Date: 20110204
  Transmission Date: 20110831
  Serious: Yes (Hospitalization)
  Sender: FDA-Public Use
  Company Number: CO-ROCHE-754616

PATIENT
  Sex: Female

DRUGS (9)
  1. FUROSEMIDE [Concomitant]
     Dosage: FREQUENCY: QD
     Route: 048
  2. WARFARIN [Concomitant]
     Dosage: FREQUENCY: QD MONDAY TO FRIDAY
  3. ACTEMRA [Suspect]
     Indication: RHEUMATOID ARTHRITIS
     Route: 042
     Dates: start: 20100205
  4. MELOXICAM [Concomitant]
     Dosage: FREQUENCY: QD
     Route: 048
  5. LEFLUNOMIDE [Concomitant]
     Dosage: FREQUENCY: QD
     Route: 048
  6. WARFARIN [Concomitant]
     Dosage: FREQUENCY: SATURDAY TO SUNDAY.
  7. FOLIC ACID [Concomitant]
     Route: 048
  8. DEFLACORT [Concomitant]
     Dosage: FREQUENCY: QD, DRUG: DEFLAZACOR
     Route: 048
  9. ACETAMINOPHEN [Concomitant]
     Route: 048

REACTIONS (1)
  - EYE HAEMORRHAGE [None]
